FAERS Safety Report 9157199 (Version 1)
Quarter: 2013Q1

REPORT INFORMATION
  Report Type: Spontaneous
  Country: DK (occurrence: None)
  Receive Date: 20130212
  Receipt Date: 20130212
  Transmission Date: 20140127
  Serious: Yes (Other)
  Sender: FDA-Public Use
  Company Number: 2013MA001042

PATIENT
  Sex: Female

DRUGS (1)
  1. CITALOPRAM HYDROBROMIDE [Suspect]

REACTIONS (7)
  - Altered state of consciousness [None]
  - Anxiety [None]
  - Bruxism [None]
  - Feeling abnormal [None]
  - Ocular icterus [None]
  - Yellow skin [None]
  - Alcohol use [None]
